FAERS Safety Report 25789830 (Version 1)
Quarter: 2025Q3

REPORT INFORMATION
  Report Type: Report from Study
  Country: US (occurrence: US)
  Receive Date: 20250911
  Receipt Date: 20250911
  Transmission Date: 20251021
  Serious: Yes (Other)
  Sender: SUNOVION
  Company Number: US-SUMITOMO PHARMA SWITZERLAND GMBH-2025SPA010145

PATIENT
  Age: 83 Year
  Sex: Male

DRUGS (16)
  1. ORGOVYX [Suspect]
     Active Substance: RELUGOLIX
     Indication: Prostate cancer
     Route: 048
  2. ORGOVYX [Suspect]
     Active Substance: RELUGOLIX
     Route: 048
  3. ACETAMINOPHEN [Concomitant]
     Active Substance: ACETAMINOPHEN
  4. AMIODARONE [Concomitant]
     Active Substance: AMIODARONE
  5. ATORVASTATIN [Concomitant]
     Active Substance: ATORVASTATIN
  6. CAPTOPRIL [Concomitant]
     Active Substance: CAPTOPRIL
  7. ELIQUIS [Concomitant]
     Active Substance: APIXABAN
  8. LATANOPROST [Concomitant]
     Active Substance: LATANOPROST
     Route: 047
  9. LEVOTHYROXINE [Concomitant]
     Active Substance: LEVOTHYROXINE
  10. METOPROLOL TARTRATE [Concomitant]
     Active Substance: METOPROLOL TARTRATE
  11. NUBEQA [Concomitant]
     Active Substance: DAROLUTAMIDE
  12. PIOGLITAZONE AND METFORMIN [Concomitant]
     Active Substance: METFORMIN HYDROCHLORIDE\PIOGLITAZONE HYDROCHLORIDE
  13. TAMSULOSIN [Concomitant]
     Active Substance: TAMSULOSIN
  14. TIMOLOL MALEATE [Concomitant]
     Active Substance: TIMOLOL MALEATE
     Route: 047
  15. TUMS EX [Concomitant]
     Active Substance: CALCIUM CARBONATE
  16. VITAMIN D3 [Concomitant]
     Active Substance: CHOLECALCIFEROL

REACTIONS (3)
  - Urinary retention [Unknown]
  - Device malfunction [Unknown]
  - Hot flush [Unknown]
